FAERS Safety Report 26107874 (Version 1)
Quarter: 2025Q4

REPORT INFORMATION
  Report Type: Spontaneous
  Country: US (occurrence: US)
  Receive Date: 20251201
  Receipt Date: 20251201
  Transmission Date: 20260117
  Serious: No
  Sender: MERCK SHARP & DOHME LLC
  Company Number: US-009507513-2346207

PATIENT
  Age: 55 Year
  Sex: Female

DRUGS (8)
  1. KEYTRUDA [Suspect]
     Active Substance: PEMBROLIZUMAB
     Indication: Renal cancer
     Route: 042
     Dates: start: 20220407, end: 20230329
  2. UBRELVY [Concomitant]
     Active Substance: UBROGEPANT
  3. NARATRIPTAN [Concomitant]
     Active Substance: NARATRIPTAN HYDROCHLORIDE
  4. BETAHISTINE [Concomitant]
     Active Substance: BETAHISTINE
  5. CITALOPRAM [Concomitant]
     Active Substance: CITALOPRAM
  6. nasal sprays [Concomitant]
  7. ESTRADIOL TRANSDERMAL SYSTEM [Concomitant]
     Active Substance: ESTRADIOL
  8. METHIMAZOLE [Concomitant]
     Active Substance: METHIMAZOLE
     Indication: Product used for unknown indication

REACTIONS (7)
  - Balance disorder [Not Recovered/Not Resolved]
  - Nausea [Unknown]
  - Vertigo [Not Recovered/Not Resolved]
  - Vestibular migraine [Unknown]
  - Hyperacusis [Unknown]
  - Dizziness [Unknown]
  - Anxiety [Unknown]

NARRATIVE: CASE EVENT DATE: 20220410
